FAERS Safety Report 14273714 (Version 1)
Quarter: 2017Q4

REPORT INFORMATION
  Report Type: Report from Study
  Country: None (occurrence: DE)
  Receive Date: 20171212
  Receipt Date: 20171212
  Transmission Date: 20180321
  Serious: Yes (Death)
  Sender: FDA-Public Use
  Company Number: DE-ABBVIE-17K-062-2189967-00

PATIENT
  Age: 81 Year
  Sex: Male

DRUGS (1)
  1. DUODOPA [Suspect]
     Active Substance: CARBIDOPA\LEVODOPA
     Indication: PARKINSON^S DISEASE
     Dosage: MD 11.0 ML, CRD 3.4 ML/H; ED 1,0 ML
     Route: 050
     Dates: start: 20170214, end: 2017

REACTIONS (1)
  - Epilepsy [Fatal]

NARRATIVE: CASE EVENT DATE: 201711
